FAERS Safety Report 15278843 (Version 2)
Quarter: 2018Q3

REPORT INFORMATION
  Report Type: Report from Study
  Country: None (occurrence: CO)
  Receive Date: 20180815
  Receipt Date: 20180906
  Transmission Date: 20181010
  Serious: Yes (Death, Hospitalization)
  Sender: FDA-Public Use
  Company Number: CO-ABBVIE-18K-036-2452296-00

PATIENT
  Age: 74 Year
  Sex: Female

DRUGS (1)
  1. HUMIRA [Suspect]
     Active Substance: ADALIMUMAB
     Indication: RHEUMATOID ARTHRITIS
     Route: 058
     Dates: start: 20081111, end: 20180612

REACTIONS (4)
  - Cardiac disorder [Unknown]
  - Respiratory disorder [Unknown]
  - Embolism [Fatal]
  - Cholelithiasis [Unknown]

NARRATIVE: CASE EVENT DATE: 2018
